FAERS Safety Report 12743822 (Version 2)
Quarter: 2016Q3

REPORT INFORMATION
  Report Type: Spontaneous
  Country: TW (occurrence: TW)
  Receive Date: 20160914
  Receipt Date: 20160920
  Transmission Date: 20161109
  Serious: Yes (Other)
  Sender: FDA-Public Use
  Company Number: TW-ASTRAZENECA-2016SE96530

PATIENT
  Age: 75 Year
  Sex: Male
  Weight: 51.5 kg

DRUGS (10)
  1. PIOGLITAZON [Concomitant]
     Dates: start: 20160725
  2. METFORMIN [Concomitant]
     Active Substance: METFORMIN HYDROCHLORIDE
     Dates: start: 20150402
  3. METFORMIN [Concomitant]
     Active Substance: METFORMIN HYDROCHLORIDE
     Dates: start: 20160725
  4. FORXIGA [Suspect]
     Active Substance: DAPAGLIFLOZIN
     Route: 048
     Dates: start: 20160414, end: 20160513
  5. ROSUVASTATIN. [Concomitant]
     Active Substance: ROSUVASTATIN
     Dates: start: 20150402
  6. AMLODIPINE [Concomitant]
     Active Substance: AMLODIPINE BESYLATE
     Dates: start: 20150402
  7. DIAMIN MR [Concomitant]
     Dates: start: 20160725
  8. BISOPROLOL [Concomitant]
     Active Substance: BISOPROLOL
     Dates: start: 20150402
  9. VALSART [Concomitant]
     Active Substance: VALSARTAN
     Dates: start: 20150402
  10. PIOGLITAZON [Concomitant]
     Dates: start: 20150402

REACTIONS (2)
  - Acute kidney injury [Recovered/Resolved]
  - Hypertension [Unknown]

NARRATIVE: CASE EVENT DATE: 20160623
